FAERS Safety Report 14419785 (Version 2)
Quarter: 2018Q1

REPORT INFORMATION
  Report Type: Report from Study
  Country: CZ (occurrence: CZ)
  Receive Date: 20180122
  Receipt Date: 20180216
  Transmission Date: 20180509
  Serious: Yes (Other)
  Sender: FDA-Public Use
  Company Number: CZ-BAUSCH-BL-2018-001331

PATIENT
  Age: 74 Year
  Sex: Female

DRUGS (3)
  1. IMNOVID [Suspect]
     Active Substance: POMALIDOMIDE
     Indication: PLASMA CELL MYELOMA
     Dosage: EVERY 28 DAYS, 4 MILLIGRAM (84MG ON A WHOLE)
     Route: 048
     Dates: start: 20151006
  2. MELPHALAN. [Concomitant]
     Active Substance: MELPHALAN
     Indication: PLASMA CELL MYELOMA
     Route: 065
  3. DEXAMETHASONE. [Suspect]
     Active Substance: DEXAMETHASONE
     Indication: PLASMA CELL MYELOMA
     Route: 065

REACTIONS (7)
  - Periodontitis [Unknown]
  - General physical health deterioration [Unknown]
  - Renal failure [Unknown]
  - Neutropenia [Unknown]
  - Muscle spasms [Unknown]
  - Anaemia [Unknown]
  - Thrombocytopenia [Unknown]
